FAERS Safety Report 10677506 (Version 2)
Quarter: 2014Q4

REPORT INFORMATION
  Report Type: Spontaneous
  Country: US (occurrence: US)
  Receive Date: 20141228
  Receipt Date: 20141228
  Transmission Date: 20150529
  Serious: No
  Sender: FDA-Public Use
  Company Number: US-BAUSCH-SYM-2013-14414

PATIENT
  Age: 69 Year
  Sex: Female

DRUGS (2)
  1. XENAZINE [Suspect]
     Active Substance: TETRABENAZINE
     Indication: HUNTINGTON^S DISEASE
     Route: 048
     Dates: start: 20131217
  2. EUCERIN [Suspect]
     Active Substance: ENSULIZOLE\EUCERIN\OCTINOXATE\OCTISALATE\TITANIUM DIOXIDE\ZINC OXIDE
     Indication: PRODUCT USED FOR UNKNOWN INDICATION

REACTIONS (9)
  - Memory impairment [Recovering/Resolving]
  - Affective disorder [Recovering/Resolving]
  - Paraesthesia [Recovered/Resolved]
  - Micturition urgency [Recovering/Resolving]
  - Abdominal pain upper [Recovered/Resolved]
  - Sleep disorder [Recovering/Resolving]
  - Medication error [Recovering/Resolving]
  - Fatigue [Recovering/Resolving]
  - Erythema [Recovered/Resolved]

NARRATIVE: CASE EVENT DATE: 20131218
